FAERS Safety Report 8304868-8 (Version None)
Quarter: 2012Q2

REPORT INFORMATION
  Report Type: 
  Country: None (occurrence: None)
  Receive Date: 20120423
  Receipt Date: 20120420
  Transmission Date: 20120825
  Serious: No
  Sender: FDA-Public Use
  Company Number: US-PFIZER INC-2012098517

PATIENT
  Sex: Female

DRUGS (2)
  1. LYRICA [Suspect]
     Dosage: 75MG IN THE MORNING AND AT 150MG AT NIGHT, 2X/DAY
     Dates: start: 20120401
  2. LYRICA [Suspect]
     Dosage: 75 MG, 2X/DAY
     Dates: start: 20120101, end: 20120401

REACTIONS (5)
  - OEDEMA PERIPHERAL [None]
  - INCREASED APPETITE [None]
  - FLUID RETENTION [None]
  - DRUG INEFFECTIVE [None]
  - WEIGHT INCREASED [None]
